FAERS Safety Report 4777682-8 (Version None)
Quarter: 2005Q3

REPORT INFORMATION
  Report Type: 
  Country: None (occurrence: None)
  Receive Date: 20050921
  Receipt Date: 20050902
  Transmission Date: 20060218
  Serious: Yes (Other)
  Sender: FDA-Public Use
  Company Number: USA050394205

PATIENT
  Age: 81 Year
  Sex: Female
  Weight: 47 kg

DRUGS (3)
  1. FORTEO [Suspect]
     Indication: OSTEOPOROSIS
     Dosage: 20 UG/1 DAY
     Dates: start: 20050317
  2. ATENOLOL [Concomitant]
  3. CARDIZEM [Concomitant]

REACTIONS (6)
  - BREAST DISORDER FEMALE [None]
  - BREAST SWELLING [None]
  - PATHOLOGICAL FRACTURE [None]
  - PHARMACEUTICAL PRODUCT COMPLAINT [None]
  - SPINAL FRACTURE [None]
  - WRONG TECHNIQUE IN DRUG USAGE PROCESS [None]
